FAERS Safety Report 19162667 (Version 1)
Quarter: 2021Q2

REPORT INFORMATION
  Report Type: Spontaneous
  Country: US (occurrence: US)
  Receive Date: 20210420
  Receipt Date: 20210420
  Transmission Date: 20210717
  Serious: No
  Sender: FDA-Public Use
  Company Number: US-DRREDDYS-USA/USA/21/0134373

PATIENT
  Age: 16 Year
  Sex: Male

DRUGS (2)
  1. ZENATANE [Suspect]
     Active Substance: ISOTRETINOIN
     Dosage: RMA ISSUE DATE : 12/31/2020 4:15:04 PM,2/2/2021 10:16:12 AM
     Route: 048
  2. ZENATANE [Suspect]
     Active Substance: ISOTRETINOIN
     Indication: PRODUCT USED FOR UNKNOWN INDICATION
     Dosage: RMA ISSUE DATE :12/28/2020 4:56:44 PM,2/2/2021 10:15:38 AM,3/3/2021 1:15:56 PM
     Route: 048

REACTIONS (3)
  - Feeling hot [Unknown]
  - Skin discomfort [Unknown]
  - Feeling abnormal [Unknown]
